FAERS Safety Report 10978419 (Version 1)
Quarter: 2015Q2

REPORT INFORMATION
  Report Type: Report from Study
  Country: US (occurrence: US)
  Receive Date: 20150402
  Receipt Date: 20150402
  Transmission Date: 20150821
  Serious: Yes (Other)
  Sender: FDA-Public Use
  Company Number: US-BAXTER-2015BAX017189

PATIENT
  Sex: Female

DRUGS (2)
  1. GAMMAGARD LIQUID [Suspect]
     Active Substance: HUMAN IMMUNOGLOBULIN G
     Indication: IMMUNODEFICIENCY COMMON VARIABLE
     Route: 042
  2. GAMUNEX-C [Suspect]
     Active Substance: HUMAN IMMUNOGLOBULIN G
     Indication: IMMUNODEFICIENCY COMMON VARIABLE
     Route: 042

REACTIONS (8)
  - Angiopathy [Unknown]
  - Chloasma [Unknown]
  - Bedridden [Unknown]
  - Sjogren^s syndrome [Unknown]
  - Autoimmune disorder [Unknown]
  - Cellulitis [Unknown]
  - Herpes zoster [Recovered/Resolved]
  - Migraine [Unknown]
